FAERS Safety Report 5988837-9 (Version None)
Quarter: 2008Q4

REPORT INFORMATION
  Report Type: 
  Country: None (occurrence: None)
  Receive Date: 20081210
  Receipt Date: 20071113
  Transmission Date: 20090506
  Serious: Yes (Other)
  Sender: FDA-Public Use
  Company Number: US-AMGEN-US157824

PATIENT
  Sex: Female
  Weight: 49.5 kg

DRUGS (3)
  1. ENBREL [Suspect]
     Indication: PSORIATIC ARTHROPATHY
     Route: 058
     Dates: start: 20000201, end: 20051117
  2. MOTRIN [Concomitant]
     Dates: start: 19991208
  3. ALEVE [Concomitant]
     Dates: start: 19990521

REACTIONS (4)
  - IRON DEFICIENCY [None]
  - LYMPHADENOPATHY [None]
  - PSORIATIC ARTHROPATHY [None]
  - THYROID CANCER METASTATIC [None]
